FAERS Safety Report 7602526-6 (Version None)
Quarter: 2011Q3

REPORT INFORMATION
  Report Type: 
  Country: None (occurrence: None)
  Receive Date: 20110701
  Receipt Date: 20110621
  Transmission Date: 20111222
  Serious: Yes (Death, Hospitalization, Other)
  Sender: FDA-Public Use
  Company Number: 011990

PATIENT
  Age: 49 Year
  Sex: Male

DRUGS (35)
  1. ETOPOSIDE [Concomitant]
  2. CYCLOPHOSPHAMIDE [Concomitant]
  3. LORAZEPAM [Concomitant]
  4. URSODIOL [Concomitant]
  5. ALPRAZOLAM [Concomitant]
  6. ACYCLOVIR [Concomitant]
  7. LOPERAMIDE [Concomitant]
  8. DIPHENHYDRAMINE HCL [Concomitant]
  9. MORPHINE [Concomitant]
  10. CEFEPIME [Concomitant]
  11. METRONIDAZOLE [Concomitant]
  12. METOPROLOL TARTRATE [Concomitant]
  13. INSULIN GLARGINE (INSULIN GLARGINE) [Concomitant]
  14. VORICONAZOLE [Concomitant]
  15. GUAIFENESIN DM (DEXTROMETHORPHAN HYDROBROMIDE, GUAIFENESIN) [Concomitant]
  16. BUSULFAN [Suspect]
     Indication: STEM CELL TRANSPLANT
     Dosage: 68 MG, DAILY DOSE, INTRAVENOUS    313 MG, DAILY DOSE, INTRAVENOUS
     Route: 042
     Dates: start: 20100929, end: 20101002
  17. BUSULFAN [Suspect]
     Indication: STEM CELL TRANSPLANT
     Dosage: 68 MG, DAILY DOSE, INTRAVENOUS    313 MG, DAILY DOSE, INTRAVENOUS
     Route: 042
     Dates: start: 20100923, end: 20100923
  18. DILTIAZEM [Concomitant]
  19. TRAZODONE HCL [Concomitant]
  20. DOCUSATE (DOCUSATE) [Concomitant]
  21. VANCOMYCIN [Concomitant]
  22. PANTOPRAZOLE [Concomitant]
  23. MEROPENEM [Concomitant]
  24. AZITHROMYCIN [Concomitant]
  25. ALUMINUM HYDROXIDE AND MAGNESIUM TRISILICATE [Concomitant]
  26. SENNA (SENNA) [Concomitant]
  27. LANSOPRAZOLE [Concomitant]
  28. BUMETANIDE [Concomitant]
  29. LOPERAMIDE [Concomitant]
  30. FENTANYL [Concomitant]
  31. ACETAMINOPHEN [Concomitant]
  32. FLUCONAZOLE [Concomitant]
  33. AMIODARONE (AMIODARONE) [Concomitant]
  34. CLINDAMYCIN [Concomitant]
  35. VORICONAZOLE [Concomitant]

REACTIONS (23)
  - VIRAEMIA [None]
  - PULMONARY ALVEOLAR HAEMORRHAGE [None]
  - NECK PAIN [None]
  - TACHYPNOEA [None]
  - CLOSTRIDIUM DIFFICILE COLITIS [None]
  - OROPHARYNGEAL PAIN [None]
  - CYTOMEGALOVIRUS VIRAEMIA [None]
  - HYPOXIA [None]
  - FEBRILE NEUTROPENIA [None]
  - CYSTITIS HAEMORRHAGIC [None]
  - BK VIRUS INFECTION [None]
  - PLATELET COUNT DECREASED [None]
  - ACUTE RESPIRATORY DISTRESS SYNDROME [None]
  - ATRIAL FIBRILLATION [None]
  - ABDOMINAL DISTENSION [None]
  - PNEUMONIA CYTOMEGALOVIRAL [None]
  - MUCOSAL INFLAMMATION [None]
  - ACUTE RESPIRATORY FAILURE [None]
  - SEPTIC SHOCK [None]
  - DIZZINESS [None]
  - TACHYCARDIA [None]
  - ABDOMINAL PAIN [None]
  - WHITE BLOOD CELL COUNT DECREASED [None]
